FAERS Safety Report 13136587 (Version 2)
Quarter: 2017Q1

REPORT INFORMATION
  Report Type: Report from Study
  Country: US (occurrence: US)
  Receive Date: 20170123
  Receipt Date: 20170203
  Transmission Date: 20170428
  Serious: Yes (Death, Hospitalization, Other)
  Sender: FDA-Public Use
  Company Number: US-AMGEN-USASL2017010204

PATIENT
  Age: 83 Year
  Sex: Female
  Weight: 54.42 kg

DRUGS (3)
  1. REPATHA [Suspect]
     Active Substance: EVOLOCUMAB
     Indication: AUTOIMMUNE HEPATITIS
  2. REPATHA [Suspect]
     Active Substance: EVOLOCUMAB
     Indication: IMMUNE THROMBOCYTOPENIC PURPURA
  3. REPATHA [Suspect]
     Active Substance: EVOLOCUMAB
     Indication: TYPE V HYPERLIPIDAEMIA
     Dosage: 140 MG, Q2WK
     Route: 058
     Dates: start: 201509, end: 201612

REACTIONS (2)
  - Lymphoma [Fatal]
  - Off label use [Unknown]

NARRATIVE: CASE EVENT DATE: 20161214
